FAERS Safety Report 15768223 (Version 2)
Quarter: 2019Q1

REPORT INFORMATION
  Report Type: Spontaneous
  Country: LY (occurrence: LY)
  Receive Date: 20181227
  Receipt Date: 20190128
  Transmission Date: 20190417
  Serious: Yes (Death, Hospitalization, Other)
  Sender: FDA-Public Use
  Company Number: LY-TAKEDA-2018MPI016818

PATIENT
  Age: 72 Year
  Sex: Female

DRUGS (1)
  1. VELCADE [Suspect]
     Active Substance: BORTEZOMIB
     Indication: PLASMA CELL MYELOMA
     Dosage: 1.3 MG/M2, 1/WEEK
     Route: 065
     Dates: start: 2018, end: 2018

REACTIONS (5)
  - Diarrhoea [Recovered/Resolved]
  - Intestinal obstruction [Unknown]
  - Enteritis [Unknown]
  - Procedural complication [Fatal]
  - Colitis [Unknown]

NARRATIVE: CASE EVENT DATE: 2018
